FAERS Safety Report 23401219 (Version 1)
Quarter: 2024Q1

REPORT INFORMATION
  Report Type: Report from Study
  Country: US (occurrence: US)
  Receive Date: 20240115
  Receipt Date: 20240115
  Transmission Date: 20240409
  Serious: Yes (Hospitalization, Other)
  Sender: FDA-Public Use
  Company Number: US-ELI_LILLY_AND_COMPANY-US202203007312

PATIENT
  Age: 74 Year
  Sex: Female

DRUGS (1)
  1. TRULICITY [Suspect]
     Active Substance: DULAGLUTIDE
     Indication: Product used for unknown indication
     Dosage: 3 MG, UNKNOWN
     Route: 065
     Dates: start: 20211229

REACTIONS (7)
  - Vomiting [Unknown]
  - Drug hypersensitivity [Not Recovered/Not Resolved]
  - Unresponsive to stimuli [Unknown]
  - Dehydration [Unknown]
  - Illness [Unknown]
  - Oropharyngeal blistering [Unknown]
  - Blister [Unknown]
